FAERS Safety Report 25433618 (Version 1)
Quarter: 2025Q2

REPORT INFORMATION
  Report Type: Spontaneous
  Country: US (occurrence: None)
  Receive Date: 20250612
  Receipt Date: 20250612
  Transmission Date: 20250717
  Serious: No
  Sender: FDA-CTU
  Company Number: None

PATIENT
  Age: 65 Year
  Sex: Male

DRUGS (1)
  1. LENALIDOMIDE [Suspect]
     Active Substance: LENALIDOMIDE
     Indication: Plasma cell myeloma
     Dosage: FREQUENCY : DAILY;?
     Route: 048
     Dates: start: 20250508, end: 20250611

REACTIONS (10)
  - Febrile neutropenia [None]
  - Pneumonia [None]
  - Sepsis [None]
  - Septic shock [None]
  - Cerebrovascular accident [None]
  - Atrial fibrillation [None]
  - Cardiac failure [None]
  - Multiple organ dysfunction syndrome [None]
  - Cytopenia [None]
  - Hepatic cirrhosis [None]

NARRATIVE: CASE EVENT DATE: 20250611
